FAERS Safety Report 8470891-6 (Version None)
Quarter: 2012Q2

REPORT INFORMATION
  Report Type: 
  Country: None (occurrence: None)
  Receive Date: 20120627
  Receipt Date: 20120620
  Transmission Date: 20120825
  Serious: Yes (Other)
  Sender: FDA-Public Use
  Company Number: VE-PFIZER INC-2012149959

PATIENT
  Sex: Female

DRUGS (2)
  1. LYRICA [Suspect]
     Dosage: 75 MG, UNK
  2. LIPITOR [Concomitant]
     Dosage: 40 MG, UNK

REACTIONS (2)
  - FOOT FRACTURE [None]
  - ROAD TRAFFIC ACCIDENT [None]
